FAERS Safety Report 20668920 (Version 2)
Quarter: 2022Q2

REPORT INFORMATION
  Report Type: Spontaneous
  Country: JP (occurrence: JP)
  Receive Date: 20220404
  Receipt Date: 20220630
  Transmission Date: 20220721
  Serious: No
  Sender: FDA-Public Use
  Company Number: JP-GLAXOSMITHKLINE-JP2022JPN056343

PATIENT

DRUGS (9)
  1. SOTROVIMAB [Suspect]
     Active Substance: SOTROVIMAB
     Indication: COVID-19
     Dosage: 500 MG
     Route: 041
     Dates: start: 20220327, end: 20220327
  2. AMBROXOL [Suspect]
     Active Substance: AMBROXOL
     Indication: Sputum retention
     Dosage: 45 MG
     Route: 048
     Dates: start: 20220328, end: 20220403
  3. FLUTICASONE FUROATE [Suspect]
     Active Substance: FLUTICASONE FUROATE
     Indication: Nasal congestion
     Dosage: 110 ?G
     Route: 045
     Dates: start: 20220404
  4. CALONAL [Suspect]
     Active Substance: ACETAMINOPHEN
     Indication: Pain
     Dosage: 400 MG/DOSE, PRN
     Route: 048
     Dates: start: 20220326
  5. CALONAL [Suspect]
     Active Substance: ACETAMINOPHEN
     Indication: Pyrexia
  6. HERBALS [Suspect]
     Active Substance: HERBALS
     Indication: Rhinorrhoea
     Dosage: 6 G
     Route: 048
     Dates: start: 20220327, end: 20220402
  7. SODIUM GUALENATE [Suspect]
     Active Substance: SODIUM GUALENATE
     Indication: Oropharyngeal pain
     Dosage: UNK
     Dates: start: 20220328
  8. DEQUALINIUM CHLORIDE [Suspect]
     Active Substance: DEQUALINIUM CHLORIDE
     Indication: Oropharyngeal pain
     Dosage: 0.25 MG
     Dates: start: 20220328
  9. DEXTROMETHORPHAN [Suspect]
     Active Substance: DEXTROMETHORPHAN
     Indication: Cough
     Dosage: 45 MG
     Route: 048
     Dates: start: 20220328, end: 20220403

REACTIONS (2)
  - Exposure during pregnancy [Unknown]
  - Live birth [Unknown]
